FAERS Safety Report 5844545-6 (Version None)
Quarter: 2008Q3

REPORT INFORMATION
  Report Type: 
  Country: None (occurrence: None)
  Receive Date: 20080814
  Receipt Date: 20080811
  Transmission Date: 20090109
  Serious: Yes (Hospitalization)
  Sender: FDA-Public Use
  Company Number: PHHO2002GB03686

PATIENT
  Sex: Male
  Weight: 61 kg

DRUGS (3)
  1. EXELON EXELON+CAP [Suspect]
     Indication: DEMENTIA ALZHEIMER'S TYPE
     Dosage: UNSPECIFIED
     Route: 048
     Dates: start: 20020120, end: 20020428
  2. CAPTOPRIL [Concomitant]
     Indication: HYPERTENSION
  3. RISPERIDONE [Concomitant]
     Indication: DEMENTIA

REACTIONS (5)
  - DIVERTICULUM [None]
  - GASTRIC ULCER [None]
  - HIATUS HERNIA [None]
  - REFLUX OESOPHAGITIS [None]
  - VOMITING [None]
